FAERS Safety Report 5227048-1 (Version None)
Quarter: 2007Q1

REPORT INFORMATION
  Report Type: 
  Country: None (occurrence: None)
  Receive Date: 20070201
  Receipt Date: 20070201
  Transmission Date: 20070707
  Serious: Yes (Other)
  Sender: FDA-Public Use
  Company Number: None

PATIENT
  Sex: Female
  Weight: 60.3284 kg

DRUGS (6)
  1. ZELNORM [Suspect]
     Indication: CONSTIPATION
     Dosage: 6MG 2XDAILY PO
     Route: 048
     Dates: start: 20070130, end: 20070131
  2. ZOLOFT [Concomitant]
  3. YASMIN [Concomitant]
  4. SLIMQUICK [Concomitant]
  5. IBUPROFEN [Concomitant]
  6. ZELNORM [Suspect]

REACTIONS (16)
  - BODY TEMPERATURE DECREASED [None]
  - CHEST DISCOMFORT [None]
  - COLD SWEAT [None]
  - DIARRHOEA [None]
  - DISORIENTATION [None]
  - DIZZINESS [None]
  - ENDOCRINE DISORDER [None]
  - FEELING HOT AND COLD [None]
  - FLUSHING [None]
  - HEART RATE INCREASED [None]
  - NAUSEA [None]
  - PERIPHERAL COLDNESS [None]
  - PHOTOPHOBIA [None]
  - TIC [None]
  - TREMOR [None]
  - VOMITING [None]
